FAERS Safety Report 12086945 (Version 1)
Quarter: 2016Q1

REPORT INFORMATION
  Report Type: Spontaneous
  Country: US (occurrence: US)
  Receive Date: 20160217
  Receipt Date: 20160217
  Transmission Date: 20160526
  Serious: No
  Sender: FDA-Public Use
  Company Number: US-ALLERGAN-1508363US

PATIENT
  Sex: Female
  Weight: 68.27 kg

DRUGS (3)
  1. AMLODIPINE BESILATE [Concomitant]
     Active Substance: AMLODIPINE BESYLATE
     Indication: BLOOD PRESSURE MEASUREMENT
     Dosage: 2.5 MG, 1X/DAY
     Dates: start: 201503
  2. RESTASIS [Suspect]
     Active Substance: CYCLOSPORINE
     Indication: DRY EYE
     Dosage: 1 GTT EACH EYE, TWICE A DAY
     Route: 047
     Dates: start: 2005
  3. REFRESH TEARS [Suspect]
     Active Substance: CARBOXYMETHYLCELLULOSE SODIUM
     Indication: DRY EYE
     Dosage: UNK, BID
     Route: 047
     Dates: start: 2013

REACTIONS (5)
  - Ocular hyperaemia [Not Recovered/Not Resolved]
  - Wrong technique in product usage process [Unknown]
  - General physical condition abnormal [Not Recovered/Not Resolved]
  - Dry eye [Not Recovered/Not Resolved]
  - Drug ineffective [Unknown]
